FAERS Safety Report 4768954-1 (Version None)
Quarter: 2005Q3

REPORT INFORMATION
  Report Type: 
  Country: None (occurrence: None)
  Receive Date: 20050913
  Receipt Date: 20050905
  Transmission Date: 20060218
  Serious: Yes (Hospitalization)
  Sender: FDA-Public Use
  Company Number: 2005-DE-02902ZA

PATIENT
  Age: 31 Year
  Sex: Female

DRUGS (1)
  1. PREDNISONE [Suspect]
     Indication: NASAL POLYPS

REACTIONS (1)
  - PULMONARY EMBOLISM [None]
